FAERS Safety Report 23930754 (Version 1)
Quarter: 2024Q2

REPORT INFORMATION
  Report Type: Spontaneous
  Country: US (occurrence: US)
  Receive Date: 20240603
  Receipt Date: 20240603
  Transmission Date: 20240716
  Serious: Yes (Other)
  Sender: FDA-Public Use
  Company Number: US-SPECGX-T202401201

PATIENT
  Age: 16 Year
  Sex: Female

DRUGS (6)
  1. METHYLPHENIDATE HYDROCHLORIDE [Suspect]
     Active Substance: METHYLPHENIDATE HYDROCHLORIDE
     Indication: Narcolepsy
     Dosage: UNK
     Route: 065
  2. DEXTROAMPHETAMINE SULFATE [Suspect]
     Active Substance: DEXTROAMPHETAMINE SULFATE
     Indication: Narcolepsy
     Dosage: UNK
     Route: 065
  3. ATOMOXETINE [Suspect]
     Active Substance: ATOMOXETINE\ATOMOXETINE HYDROCHLORIDE
     Indication: Narcolepsy
     Dosage: UNK
     Route: 065
  4. SODIUM OXYBATE [Suspect]
     Active Substance: SODIUM OXYBATE
     Indication: Narcolepsy
     Dosage: UNK
     Route: 065
  5. PITOLISANT [Suspect]
     Active Substance: PITOLISANT
     Indication: Narcolepsy
     Dosage: 13.35 MILLIGRAM (TITRATED)
     Route: 065
  6. PITOLISANT [Suspect]
     Active Substance: PITOLISANT
     Dosage: 8.9 MILLIGRAM, QD
     Route: 065

REACTIONS (7)
  - Suicidal ideation [Unknown]
  - Depression [Unknown]
  - Mania [Unknown]
  - Decreased appetite [Unknown]
  - Anxiety [Unknown]
  - Palpitations [Unknown]
  - Drug ineffective [Unknown]
